FAERS Safety Report 4953941-0 (Version None)
Quarter: 2006Q1

REPORT INFORMATION
  Report Type: 
  Country: None (occurrence: None)
  Receive Date: 20060327
  Receipt Date: 20060314
  Transmission Date: 20060701
  Serious: Yes (Death)
  Sender: FDA-Public Use
  Company Number: JP-JNJFOC-20060302479

PATIENT
  Sex: Male
  Weight: 55 kg

DRUGS (7)
  1. CRAVIT [Suspect]
     Route: 048
     Dates: start: 20060219, end: 20060220
  2. ZONISAMIDE [Suspect]
     Indication: EPILEPSY
     Route: 048
     Dates: start: 20060125, end: 20060224
  3. CERCINE [Concomitant]
     Indication: PSYCHOSOMATIC DISEASE
     Route: 048
     Dates: start: 20051011, end: 20060224
  4. AMLODIN [Concomitant]
     Indication: HYPERTENSION
     Route: 048
     Dates: start: 20051025, end: 20060224
  5. TOCLASE [Concomitant]
     Route: 048
  6. PREDNISOLONE [Concomitant]
     Route: 048
     Dates: start: 20060219, end: 20060220
  7. MICARDIS [Concomitant]
     Indication: HYPERTENSION
     Route: 048
     Dates: start: 20051025

REACTIONS (12)
  - ALANINE AMINOTRANSFERASE INCREASED [None]
  - ASPARTATE AMINOTRANSFERASE INCREASED [None]
  - BLOOD PRESSURE DECREASED [None]
  - CARDIAC ARREST [None]
  - DEHYDRATION [None]
  - DRUG ERUPTION [None]
  - DRUG HYPERSENSITIVITY [None]
  - ENTEROCOLITIS HAEMORRHAGIC [None]
  - HEART RATE DECREASED [None]
  - HYPOALBUMINAEMIA [None]
  - NASOPHARYNGITIS [None]
  - PNEUMONIA [None]
